FAERS Safety Report 5714116-0 (Version None)
Quarter: 2008Q2

REPORT INFORMATION
  Report Type: 
  Country: None (occurrence: None)
  Receive Date: 20080421
  Receipt Date: 20080409
  Transmission Date: 20081010
  Serious: Yes (Death, Hospitalization, Other)
  Sender: FDA-Public Use
  Company Number: 2007-00388

PATIENT
  Age: 63 Year
  Sex: Male
  Weight: 58 kg

DRUGS (18)
  1. VELCADE [Suspect]
     Indication: MULTIPLE MYELOMA
     Dosage: 1.30 MG/M2,; 1.6 MG, INTRAVENOUS
     Dates: start: 20061211, end: 20070202
  2. VELCADE [Suspect]
     Indication: MULTIPLE MYELOMA
     Dosage: 1.30 MG/M2,; 1.6 MG, INTRAVENOUS
     Dates: start: 20070219, end: 20071022
  3. DEXAMETHASONE TAB [Suspect]
     Indication: MULTIPLE MYELOMA
     Dosage: 4.00 MG, ORAL; 20 MG, ORAL
     Route: 048
     Dates: start: 20061219, end: 20070111
  4. DEXAMETHASONE TAB [Suspect]
     Indication: MULTIPLE MYELOMA
     Dosage: 4.00 MG, ORAL; 20 MG, ORAL
     Route: 048
     Dates: start: 20070126, end: 20071023
  5. AMLODIPINE BESYLATE [Concomitant]
  6. ZOVIRAX [Concomitant]
  7. ALLOPURINOL [Concomitant]
  8. OMEPRAL (OMEPRAZOLE) [Concomitant]
  9. MAGNESIUM OXIDE (MAGNESIUM OXIDE) [Concomitant]
  10. LAXOBERON (SODIUM PICOSULFATE) [Concomitant]
  11. KALIMATE (CALCIUM POLYSTYRENE SULFONATE) [Concomitant]
  12. PURSENNID (SENNA LEAF) [Concomitant]
  13. SOLDEM 1 (GLUCOSE, SODIUM LACTATE, SODIUM CHLORIDE) [Concomitant]
  14. RED BLOOD CELLS [Concomitant]
  15. PLATELETS [Concomitant]
  16. CHLORPHENIRAMINE MALEATE [Concomitant]
  17. SOLU-CORTEF [Concomitant]
  18. LASIX [Concomitant]

REACTIONS (31)
  - ALANINE AMINOTRANSFERASE INCREASED [None]
  - ANOREXIA [None]
  - ASPARTATE AMINOTRANSFERASE INCREASED [None]
  - BLOOD AMYLASE DECREASED [None]
  - BLOOD LACTATE DEHYDROGENASE DECREASED [None]
  - BLOOD SODIUM DECREASED [None]
  - DIARRHOEA [None]
  - DISEASE PROGRESSION [None]
  - DIZZINESS [None]
  - EYE DISCHARGE [None]
  - GINGIVAL SWELLING [None]
  - HEADACHE [None]
  - HICCUPS [None]
  - HYPERAEMIA [None]
  - HYPERURICAEMIA [None]
  - HYPOGEUSIA [None]
  - HYPOKALAEMIA [None]
  - ILEUS PARALYTIC [None]
  - NERVE INJURY [None]
  - ORAL MUCOSAL PETECHIAE [None]
  - PAIN IN EXTREMITY [None]
  - PALPITATIONS [None]
  - PHARYNGOLARYNGEAL PAIN [None]
  - PLATELET COUNT DECREASED [None]
  - PLEURAL EFFUSION [None]
  - PNEUMONIA [None]
  - RASH [None]
  - STOMACH DISCOMFORT [None]
  - THROMBOCYTOPENIA [None]
  - UPPER RESPIRATORY TRACT INFLAMMATION [None]
  - WEIGHT INCREASED [None]
